FAERS Safety Report 12760981 (Version 1)
Quarter: 2016Q3

REPORT INFORMATION
  Report Type: Report from Study
  Country: ES (occurrence: ES)
  Receive Date: 20160919
  Receipt Date: 20160919
  Transmission Date: 20161109
  Serious: Yes (Other)
  Sender: FDA-Public Use
  Company Number: ES-BAXTER-2016BAX047022

PATIENT
  Age: 48 Year

DRUGS (12)
  1. RITUXIMAB [Suspect]
     Active Substance: RITUXIMAB
     Indication: CHRONIC LYMPHOCYTIC LEUKAEMIA
     Dosage: TOTAL DOSE
     Route: 065
     Dates: start: 20110120, end: 20110128
  2. FLUDARABINE [Suspect]
     Active Substance: FLUDARABINE PHOSPHATE
     Dosage: TOTAL DOSE
     Route: 065
     Dates: start: 20111128, end: 20111203
  3. FLUDARABINE [Suspect]
     Active Substance: FLUDARABINE PHOSPHATE
     Dosage: TOTAL DOSE
     Route: 065
     Dates: start: 20120221, end: 20120225
  4. GENOXAL [Suspect]
     Active Substance: CYCLOPHOSPHAMIDE
     Dosage: TOTAL DOSE
     Route: 065
     Dates: start: 20111227, end: 20111231
  5. RITUXIMAB [Suspect]
     Active Substance: RITUXIMAB
     Dosage: TOTAL DOSE
     Route: 065
     Dates: start: 20111128, end: 20111203
  6. RITUXIMAB [Suspect]
     Active Substance: RITUXIMAB
     Dosage: TOTAL DOSE
     Route: 065
     Dates: start: 20120221, end: 20120225
  7. GENOXAL [Suspect]
     Active Substance: CYCLOPHOSPHAMIDE
     Dosage: TOTAL DOSE
     Route: 065
     Dates: start: 20111128, end: 20111203
  8. GENOXAL [Suspect]
     Active Substance: CYCLOPHOSPHAMIDE
     Indication: CHRONIC LYMPHOCYTIC LEUKAEMIA
     Dosage: TOTAL DOSE
     Route: 065
     Dates: start: 20110120, end: 20110128
  9. GENOXAL [Suspect]
     Active Substance: CYCLOPHOSPHAMIDE
     Dosage: TOTAL DOSE
     Route: 065
     Dates: start: 20120221, end: 20120225
  10. FLUDARABINE [Suspect]
     Active Substance: FLUDARABINE PHOSPHATE
     Indication: CHRONIC LYMPHOCYTIC LEUKAEMIA
     Dosage: TOTAL DOSE
     Route: 065
     Dates: start: 20110120, end: 20110128
  11. RITUXIMAB [Suspect]
     Active Substance: RITUXIMAB
     Dosage: TOTAL DOSE
     Route: 065
     Dates: start: 20111227, end: 20111231
  12. FLUDARABINE [Suspect]
     Active Substance: FLUDARABINE PHOSPHATE
     Dosage: TOTAL DOSE
     Route: 065
     Dates: start: 20111227, end: 20111231

REACTIONS (2)
  - Urinary tract pain [Recovered/Resolved]
  - Neutrophil count decreased [Recovered/Resolved]

NARRATIVE: CASE EVENT DATE: 20111201
